FAERS Safety Report 21699470 (Version 1)
Quarter: 2022Q4

REPORT INFORMATION
  Report Type: Spontaneous
  Country: CA (occurrence: CA)
  Receive Date: 20221208
  Receipt Date: 20221208
  Transmission Date: 20230113
  Serious: Yes (Disabling)
  Sender: FDA-Public Use
  Company Number: CA-002147023-NVSC2022CA283218

PATIENT
  Age: 28 Year
  Sex: Male
  Weight: 97 kg

DRUGS (1)
  1. CARBAMAZEPINE [Suspect]
     Active Substance: CARBAMAZEPINE
     Indication: Bipolar disorder
     Dosage: 200 MG, BID (THERAPY DURATION: 5 DAYS)
     Route: 065

REACTIONS (1)
  - Auditory disorder [Not Recovered/Not Resolved]
